FAERS Safety Report 23069110 (Version 1)
Quarter: 2023Q4

REPORT INFORMATION
  Report Type: Spontaneous
  Country: FR (occurrence: FR)
  Receive Date: 20231016
  Receipt Date: 20231016
  Transmission Date: 20240110
  Serious: Yes (Other)
  Sender: FDA-Public Use
  Company Number: FR-009507513-2309FRA008151

PATIENT
  Age: 73 Year
  Sex: Male

DRUGS (8)
  1. CARBOPLATIN [Suspect]
     Active Substance: CARBOPLATIN
     Indication: Squamous cell carcinoma of lung
     Dosage: UNK
     Dates: start: 202104
  2. FLUOROURACIL\HEPARIN [Suspect]
     Active Substance: FLUOROURACIL\HEPARIN
     Indication: Squamous cell carcinoma of lung
     Dosage: UNK
     Dates: start: 202101
  3. TAXOL [Suspect]
     Active Substance: PACLITAXEL
     Indication: Squamous cell carcinoma of lung
     Dosage: UNK
     Dates: start: 202104
  4. KEYTRUDA [Suspect]
     Active Substance: PEMBROLIZUMAB
     Indication: Squamous cell carcinoma of lung
     Dosage: 200 MG
     Dates: start: 20210101
  5. INNOHEP [Concomitant]
     Active Substance: TINZAPARIN SODIUM
  6. SPIRONOLACTONE [Concomitant]
     Active Substance: SPIRONOLACTONE
  7. FUROSEMIDE [Concomitant]
     Active Substance: FUROSEMIDE
  8. SIMVASTATIN [Concomitant]
     Active Substance: SIMVASTATIN

REACTIONS (12)
  - Adrenal insufficiency [Unknown]
  - Central hypothyroidism [Unknown]
  - Immune-mediated hypophysitis [Unknown]
  - CSF protein abnormal [Unknown]
  - Neoplasm progression [Unknown]
  - Agitation [Unknown]
  - Product use in unapproved indication [Unknown]
  - Gonadotrophin deficiency [Unknown]
  - Confusional state [Unknown]
  - Behaviour disorder [Unknown]
  - Cognitive disorder [Unknown]
  - Neuralgia [Unknown]

NARRATIVE: CASE EVENT DATE: 20210501
